FAERS Safety Report 6028822-4 (Version None)
Quarter: 2008Q4

REPORT INFORMATION
  Report Type: 
  Country: None (occurrence: None)
  Receive Date: 20081222
  Receipt Date: 20081022
  Transmission Date: 20090506
  Serious: No
  Sender: FDA-Public Use
  Company Number: ALL1-2008-03085

PATIENT
  Age: 6 Year
  Sex: Male
  Weight: 22.7 kg

DRUGS (9)
  1. VYVANSE [Suspect]
     Indication: ATTENTION DEFICIT/HYPERACTIVITY DISORDER
     Dosage: 30 MG, 1X/DAY:QD, ORAL ; 50 MG, 1X/DAY:QD, ORAL
     Route: 048
     Dates: start: 20080501, end: 20080601
  2. VYVANSE [Suspect]
     Indication: ATTENTION DEFICIT/HYPERACTIVITY DISORDER
     Dosage: 30 MG, 1X/DAY:QD, ORAL ; 50 MG, 1X/DAY:QD, ORAL
     Route: 048
     Dates: start: 20080601, end: 20080901
  3. VYVANSE [Suspect]
     Dosage: 40 MG, 1X/DAY:QD, ORAL
     Route: 048
     Dates: start: 20080901
  4. SINGULAIR /01362601/ (MONTELUKAST) [Concomitant]
  5. PULMICORT RESP (BUDESONIDE) [Concomitant]
  6. NASAL SPRAY NASAL SPRAY [Concomitant]
  7. UNSPECIFIED INHALER INHALATION GAS [Concomitant]
  8. XOPENEX [Concomitant]
  9. ALLEGRA /01314201/ (FEXOFENADINE) [Concomitant]

REACTIONS (4)
  - DRUG EFFECT INCREASED [None]
  - DRUG INEFFECTIVE [None]
  - NEGATIVISM [None]
  - PRODUCT QUALITY ISSUE [None]
